FAERS Safety Report 6957502-3 (Version None)
Quarter: 2010Q3

REPORT INFORMATION
  Report Type: 
  Country: None (occurrence: None)
  Receive Date: 20100831
  Receipt Date: 20100316
  Transmission Date: 20110219
  Serious: No
  Sender: FDA-Public Use
  Company Number: A0837258A

PATIENT
  Age: 70 Year
  Sex: Female

DRUGS (3)
  1. ALBENZA [Suspect]
     Indication: NEUROCYSTICERCOSIS
     Dosage: 400MG TWICE PER DAY
     Route: 048
     Dates: start: 20050101
  2. LISINOPRIL [Concomitant]
  3. PAIN MEDICATION [Concomitant]

REACTIONS (8)
  - ALOPECIA [None]
  - BACK PAIN [None]
  - DISEASE PROGRESSION [None]
  - DRUG EFFECT DECREASED [None]
  - FATIGUE [None]
  - HEPATIC PAIN [None]
  - INFECTION PARASITIC [None]
  - NAUSEA [None]
